FAERS Safety Report 16725689 (Version 1)
Quarter: 2019Q3

REPORT INFORMATION
  Report Type: Spontaneous
  Country: DE (occurrence: DE)
  Receive Date: 20190821
  Receipt Date: 20190821
  Transmission Date: 20191005
  Serious: Yes (Other)
  Sender: FDA-Public Use
  Company Number: DE-PROVELL PHARMACEUTICALS-2073478

PATIENT
  Age: 38 Year
  Sex: Female
  Weight: 61 kg

DRUGS (2)
  1. EUTHYROX [Suspect]
     Active Substance: LEVOTHYROXINE SODIUM
     Dates: start: 2019, end: 20190727
  2. EUTHYROX [Suspect]
     Active Substance: LEVOTHYROXINE SODIUM
     Indication: HYPOTHYROIDISM
     Dates: start: 2016, end: 2019

REACTIONS (13)
  - Micturition urgency [Recovered/Resolved]
  - Anxiety [Recovered/Resolved]
  - Asthenia [Recovered/Resolved]
  - Hypotension [Recovered/Resolved]
  - Tri-iodothyronine abnormal [Recovered/Resolved]
  - Restlessness [Recovered/Resolved]
  - Listless [Recovered/Resolved]
  - Depression [Recovered/Resolved]
  - Blood thyroid stimulating hormone abnormal [Recovered/Resolved]
  - Thyroxine abnormal [Recovered/Resolved]
  - Panic attack [Recovered/Resolved]
  - Weight decreased [Recovered/Resolved]
  - Fatigue [Recovered/Resolved]

NARRATIVE: CASE EVENT DATE: 201907
